FAERS Safety Report 12803273 (Version 1)
Quarter: 2016Q4

REPORT INFORMATION
  Report Type: Spontaneous
  Country: US (occurrence: US)
  Receive Date: 20161003
  Receipt Date: 20161003
  Transmission Date: 20170207
  Serious: Yes (Hospitalization)
  Sender: FDA-Public Use
  Company Number: US-INTERCEPT PHARMACEUTICALS, INC.-1057929

PATIENT
  Age: 70 Year
  Sex: Female

DRUGS (5)
  1. OCALIVA [Suspect]
     Active Substance: OBETICHOLIC ACID
     Indication: BILIARY CIRRHOSIS PRIMARY
     Route: 048
     Dates: start: 20160808, end: 20160901
  2. OCUVITE [Concomitant]
     Active Substance: VITAMINS
  3. LEVOTHYROXINE. [Concomitant]
     Active Substance: LEVOTHYROXINE
  4. IRBESARTAN. [Concomitant]
     Active Substance: IRBESARTAN
  5. UDCA [Concomitant]
     Active Substance: URSODIOL

REACTIONS (7)
  - Vertigo [Recovered/Resolved]
  - Blood pressure diastolic decreased [Unknown]
  - Pruritus [Not Recovered/Not Resolved]
  - Sluggishness [Unknown]
  - Dehydration [Unknown]
  - Blood bilirubin increased [Unknown]
  - Blood alkaline phosphatase increased [Unknown]

NARRATIVE: CASE EVENT DATE: 20160823
